FAERS Safety Report 23647051 (Version 1)
Quarter: 2024Q1

REPORT INFORMATION
  Report Type: Other
  Country: US (occurrence: None)
  Receive Date: 20240319
  Receipt Date: 20240319
  Transmission Date: 20240409
  Serious: Yes (Death, Other)
  Sender: FDA-Public Use
  Company Number: US-ROCHE-2838512

PATIENT

DRUGS (8)
  1. VOCLOSPORIN [Suspect]
     Active Substance: VOCLOSPORIN
     Indication: Systemic lupus erythematosus
     Route: 048
  2. VOCLOSPORIN [Suspect]
     Active Substance: VOCLOSPORIN
     Indication: Lupus nephritis
  3. MYCOPHENOLATE MOFETIL [Suspect]
     Active Substance: MYCOPHENOLATE MOFETIL
     Indication: Systemic lupus erythematosus
     Route: 065
  4. MYCOPHENOLATE MOFETIL [Suspect]
     Active Substance: MYCOPHENOLATE MOFETIL
     Indication: Lupus nephritis
  5. METHYLPREDNISOLONE [Suspect]
     Active Substance: METHYLPREDNISOLONE
     Indication: Systemic lupus erythematosus
     Route: 042
  6. METHYLPREDNISOLONE [Suspect]
     Active Substance: METHYLPREDNISOLONE
     Indication: Lupus nephritis
  7. PREDNISONE [Suspect]
     Active Substance: PREDNISONE
     Indication: Systemic lupus erythematosus
     Route: 048
  8. PREDNISONE [Suspect]
     Active Substance: PREDNISONE
     Indication: Lupus nephritis

REACTIONS (20)
  - Pneumonia [Fatal]
  - Septic shock [Fatal]
  - Infection [Unknown]
  - Renal failure [Unknown]
  - Renal impairment [Unknown]
  - Lupus nephritis [Unknown]
  - Glomerulonephritis [Unknown]
  - Chronic kidney disease [Unknown]
  - Proteinuria [Unknown]
  - Glomerular filtration rate decreased [Unknown]
  - Electrocardiogram QT prolonged [Unknown]
  - Cervix carcinoma stage 0 [Unknown]
  - Uterine leiomyoma [Unknown]
  - Pulmonary tuberculosis [Unknown]
  - Urinary tract infection [Unknown]
  - Anaemia [Unknown]
  - Hyperkalaemia [Unknown]
  - Photosensitivity reaction [Unknown]
  - Hypertension [Unknown]
  - Pulmonary mass [Unknown]
